FAERS Safety Report 24121826 (Version 5)
Quarter: 2024Q4

REPORT INFORMATION
  Report Type: Spontaneous
  Country: US (occurrence: US)
  Receive Date: 20240722
  Receipt Date: 20241213
  Transmission Date: 20250115
  Serious: Yes (Other)
  Sender: SANOFI AVENTIS
  Company Number: US-SA-SAC20240717000756

PATIENT
  Age: 36 Year
  Sex: Male

DRUGS (6)
  1. ALPROLIX [Suspect]
     Active Substance: EFTRENONACOG ALFA
     Indication: Factor IX deficiency
     Dosage: 4000 IU (3600-4400), BIW (FREQUENCY: TWICE WEEKLY WHILE WORKING)
     Route: 042
     Dates: start: 202202
  2. ALPROLIX [Suspect]
     Active Substance: EFTRENONACOG ALFA
     Indication: Factor IX deficiency
     Dosage: 4000 IU (3600-4400), BIW (FREQUENCY: TWICE WEEKLY WHILE WORKING)
     Route: 042
     Dates: start: 202202
  3. ALPROLIX [Suspect]
     Active Substance: EFTRENONACOG ALFA
     Dosage: 4000 IU (3600-4400), QW (ONCE WEEKLY DURING OFF WEEKS)
     Route: 042
     Dates: start: 202202
  4. ALPROLIX [Suspect]
     Active Substance: EFTRENONACOG ALFA
     Dosage: 4000 IU (3600-4400), QW (ONCE WEEKLY DURING OFF WEEKS)
     Route: 042
     Dates: start: 202202
  5. ALPROLIX [Suspect]
     Active Substance: EFTRENONACOG ALFA
     Dosage: 4000 IU (3600-4400), PRN (EVERY 24 HOURS AS DIRECTED BY PHYSICIAN FOR BLEEDING)
     Route: 042
     Dates: start: 202202
  6. ALPROLIX [Suspect]
     Active Substance: EFTRENONACOG ALFA
     Dosage: 4000 IU (3600-4400), PRN (EVERY 24 HOURS AS DIRECTED BY PHYSICIAN FOR BLEEDING)
     Route: 042
     Dates: start: 202202

REACTIONS (3)
  - Haemarthrosis [Unknown]
  - Haemorrhage [Recovered/Resolved]
  - Spontaneous haemorrhage [Unknown]

NARRATIVE: CASE EVENT DATE: 20240620
